FAERS Safety Report 17636142 (Version 3)
Quarter: 2021Q1

REPORT INFORMATION
  Report Type: Spontaneous
  Country: CA (occurrence: CA)
  Receive Date: 20200407
  Receipt Date: 20210304
  Transmission Date: 20210419
  Serious: Yes (Hospitalization)
  Sender: FDA-Public Use
  Company Number: CA-009507513-2004CAN001312

PATIENT
  Age: 56 Year
  Sex: Female

DRUGS (28)
  1. EMEND [Suspect]
     Active Substance: APREPITANT
     Indication: NAUSEA
     Dosage: DOSAGE FORM UNKNOWN
     Route: 065
  2. METOCLOPRAMIDE HYDROCHLORIDE. [Suspect]
     Active Substance: METOCLOPRAMIDE HYDROCHLORIDE
     Indication: NAUSEA
  3. DIMENHYDRINATE. [Suspect]
     Active Substance: DIMENHYDRINATE
     Indication: NAUSEA
  4. DOMPERIDONE [Suspect]
     Active Substance: DOMPERIDONE
     Indication: NAUSEA
  5. PROCHLORPERAZINE. [Suspect]
     Active Substance: PROCHLORPERAZINE
     Indication: VOMITING
     Dosage: UNK; DOSAGE FORM NOT SPECIFIED
     Route: 065
  6. PANTOPRAZOLE SODIUM. [Suspect]
     Active Substance: PANTOPRAZOLE SODIUM
     Indication: NAUSEA
     Route: 065
  7. PANTOPRAZOLE SODIUM. [Suspect]
     Active Substance: PANTOPRAZOLE SODIUM
     Indication: VOMITING
     Dosage: UNK
     Route: 065
  8. OLANZAPINE. [Suspect]
     Active Substance: OLANZAPINE
     Indication: NAUSEA
  9. PANTOPRAZOLE [Suspect]
     Active Substance: PANTOPRAZOLE
     Indication: NAUSEA
     Dosage: UNK; DOSAGE FORM UNKNOWN
     Route: 065
  10. PRUCALOPRIDE [Suspect]
     Active Substance: PRUCALOPRIDE
     Indication: VOMITING
     Dosage: UNK
     Route: 065
  11. PRUCALOPRIDE [Suspect]
     Active Substance: PRUCALOPRIDE
     Indication: VOMITING
     Dosage: UNK
     Route: 065
  12. PRUCALOPRIDE [Suspect]
     Active Substance: PRUCALOPRIDE
     Indication: NAUSEA
  13. DOMPERIDONE [Suspect]
     Active Substance: DOMPERIDONE
     Indication: VOMITING
  14. DOMPERIDONE [Suspect]
     Active Substance: DOMPERIDONE
     Indication: VOMITING
     Dosage: UNK
     Route: 065
  15. NABILONE [Suspect]
     Active Substance: NABILONE
     Indication: VOMITING
     Dosage: 0.5 MILLIGRAM, DOSAGE FORM NOT SPECIFIED
     Route: 065
  16. NABILONE [Suspect]
     Active Substance: NABILONE
     Indication: NAUSEA
     Dosage: UNK
     Route: 065
  17. OLANZAPINE. [Suspect]
     Active Substance: OLANZAPINE
     Indication: VOMITING
     Dosage: UNK; DOSAGE FORM NOT SPECIFIED
     Route: 065
  18. ONDANSETRON [Suspect]
     Active Substance: ONDANSETRON
     Indication: VOMITING
     Dosage: UNK; DOSAGE FORM NOT SPECIFIED
     Route: 065
  19. EMEND [Suspect]
     Active Substance: APREPITANT
     Indication: VOMITING
     Dosage: 80 MILLIGRAM, QD
     Route: 065
  20. DOMPERIDONE [Suspect]
     Active Substance: DOMPERIDONE
     Indication: NAUSEA
     Dosage: UNK
     Route: 065
  21. METOCLOPRAMIDE HYDROCHLORIDE. [Suspect]
     Active Substance: METOCLOPRAMIDE HYDROCHLORIDE
     Indication: VOMITING
     Dosage: UNK
     Route: 065
  22. PRUCALOPRIDE [Suspect]
     Active Substance: PRUCALOPRIDE
     Indication: NAUSEA
  23. METOCLOPRAMIDE HYDROCHLORIDE. [Suspect]
     Active Substance: METOCLOPRAMIDE HYDROCHLORIDE
     Indication: VOMITING
     Route: 065
  24. METOCLOPRAMIDE HYDROCHLORIDE. [Suspect]
     Active Substance: METOCLOPRAMIDE HYDROCHLORIDE
     Indication: NAUSEA
  25. PANTOPRAZOLE [Suspect]
     Active Substance: PANTOPRAZOLE
     Indication: VOMITING
     Dosage: UNK; DOSAGE FORM NOT SPECIFIED
     Route: 065
  26. DIMENHYDRINATE. [Suspect]
     Active Substance: DIMENHYDRINATE
     Indication: VOMITING
     Dosage: UNK; DOSAGE FORM NOT SPECIFIED
     Route: 065
  27. ONDANSETRON [Suspect]
     Active Substance: ONDANSETRON
     Indication: NAUSEA
     Dosage: 8.0 MILLIGRAM, 2 EVERY 1 DAYS; DOSAGE FORM NOT SPECIFIED
  28. PROCHLORPERAZINE. [Suspect]
     Active Substance: PROCHLORPERAZINE
     Indication: NAUSEA

REACTIONS (2)
  - Off label use [Unknown]
  - Treatment failure [Unknown]
